FAERS Safety Report 14518683 (Version 1)
Quarter: 2018Q1

REPORT INFORMATION
  Report Type: Spontaneous
  Country: US (occurrence: US)
  Receive Date: 20180212
  Receipt Date: 20180212
  Transmission Date: 20180509
  Serious: No
  Sender: FDA-Public Use
  Company Number: US-009507513-1801USA006147

PATIENT
  Age: 65 Year
  Sex: Female

DRUGS (4)
  1. NATURE-THROID [Concomitant]
     Active Substance: THYROID, PORCINE
  2. LIOTHYRONINE SODIUM. [Concomitant]
     Active Substance: LIOTHYRONINE SODIUM
  3. ASMANEX [Suspect]
     Active Substance: MOMETASONE FUROATE
     Indication: ASTHMA
     Dosage: 220 MICROGRAM, ONE INHALATION ONCE A DAY
     Route: 055
  4. SINGULAIR [Concomitant]
     Active Substance: MONTELUKAST SODIUM
     Dosage: UNK, AS NEEDED

REACTIONS (1)
  - Nontherapeutic agent urine positive [Not Recovered/Not Resolved]

NARRATIVE: CASE EVENT DATE: 201712
